FAERS Safety Report 9464014 (Version 4)
Quarter: 2014Q3

REPORT INFORMATION
  Report Type: Spontaneous
  Country: US (occurrence: US)
  Receive Date: 20130819
  Receipt Date: 20140918
  Transmission Date: 20150326
  Serious: Yes (Congenital Anomaly, Other)
  Sender: FDA-Public Use
  Company Number: US-PFIZER INC-2013235609

PATIENT
  Sex: Female
  Weight: 3.55 kg

DRUGS (28)
  1. EFFEXOR [Suspect]
     Active Substance: VENLAFAXINE HYDROCHLORIDE
     Dosage: 37.5 MG, 1X/DAY
     Route: 064
     Dates: start: 20100812, end: 20101117
  2. PROAIR HFA [Concomitant]
     Active Substance: ALBUTEROL SULFATE
     Indication: BRONCHITIS
     Dosage: 108 MCG/ACT, TWO PUFFS 4X/DAY
     Route: 064
     Dates: start: 20100927, end: 20101117
  3. OCELLA [Concomitant]
     Active Substance: DROSPIRENONE\ETHINYL ESTRADIOL
     Dosage: UNK
     Route: 064
  4. CAMILA [Concomitant]
     Active Substance: NORETHINDRONE
     Dosage: UNK
     Route: 064
  5. NITROFURANTOIN. [Concomitant]
     Active Substance: NITROFURANTOIN
     Dosage: UNK
     Route: 064
  6. EFFEXOR [Suspect]
     Active Substance: VENLAFAXINE HYDROCHLORIDE
     Indication: DEPRESSION
     Dosage: UNK
     Route: 064
     Dates: start: 200912, end: 20100923
  7. FERROUS SULFATE [Concomitant]
     Active Substance: FERROUS SULFATE\FERROUS SULFATE, DRIED
     Dosage: 325 MG, 1X/DAY
     Route: 064
     Dates: start: 20110429, end: 20110808
  8. IBUPROFEN. [Concomitant]
     Active Substance: IBUPROFEN
     Dosage: UNK
     Route: 064
  9. BUPROPION [Concomitant]
     Active Substance: BUPROPION
     Dosage: UNK
     Route: 064
  10. LORATADINE. [Concomitant]
     Active Substance: LORATADINE
     Dosage: 10 MG, UNK
     Route: 064
     Dates: start: 20110614
  11. MEDROXYPROGESTERONE [Concomitant]
     Active Substance: MEDROXYPROGESTERONE
     Dosage: UNK
     Route: 064
  12. MACROBID [Concomitant]
     Active Substance: NITROFURANTOIN\NITROFURANTOIN MONOHYDRATE
     Dosage: UNK
     Route: 064
  13. WELLBUTRIN [Concomitant]
     Active Substance: BUPROPION HYDROCHLORIDE
     Indication: DEPRESSION
     Dosage: 75 MG, 1X/DAY
     Route: 064
     Dates: end: 20101117
  14. SLOW-FE [Concomitant]
     Dosage: 160 MG, UNK
     Route: 064
     Dates: start: 20110421, end: 20110607
  15. DEPAKOTE [Concomitant]
     Active Substance: DIVALPROEX SODIUM
     Dosage: UNK
     Route: 064
  16. EFFEXOR XR [Concomitant]
     Active Substance: VENLAFAXINE HYDROCHLORIDE
     Dosage: 75 MG, UNK
     Route: 064
     Dates: start: 20091201
  17. BENZONATATE. [Concomitant]
     Active Substance: BENZONATATE
     Indication: COUGH
     Dosage: 100 MG, ONE OR TWO CAPSULES AS NEEDED
     Route: 064
     Dates: start: 20100927, end: 20101117
  18. AZITHROMYCIN [Concomitant]
     Active Substance: AZITHROMYCIN ANHYDROUS
     Indication: BRONCHITIS
     Dosage: 250 MG, DAILY
     Route: 064
     Dates: start: 20100927
  19. PAROXETINE [Concomitant]
     Active Substance: PAROXETINE\PAROXETINE HYDROCHLORIDE
     Dosage: UNK
     Route: 064
  20. IMITREX [Concomitant]
     Active Substance: SUMATRIPTAN\SUMATRIPTAN SUCCINATE
     Dosage: UNK
     Route: 064
  21. ACETAMINOPHEN. [Concomitant]
     Active Substance: ACETAMINOPHEN
     Dosage: 325 MG, AS NEEDED
     Route: 064
     Dates: end: 20110704
  22. CITALOPRAM [Concomitant]
     Active Substance: CITALOPRAM HYDROBROMIDE
     Dosage: UNK
     Route: 064
  23. CELEXA [Concomitant]
     Active Substance: CITALOPRAM HYDROBROMIDE
     Dosage: UNK
     Route: 064
  24. AZITHROMYCIN [Concomitant]
     Active Substance: AZITHROMYCIN ANHYDROUS
     Dosage: 500 MG, DAILY (250MG TWO TABLETS)
     Route: 064
     Dates: start: 20100928, end: 20101002
  25. PRENATAL VITAMINS [Concomitant]
     Active Substance: VITAMINS
     Dosage: 1 DF, DAILY
     Route: 064
     Dates: start: 20101117, end: 20110808
  26. AMOXICILLIN. [Concomitant]
     Active Substance: AMOXICILLIN
     Dosage: 500 MG, 3X/DAY
     Route: 064
     Dates: start: 20110103, end: 20110113
  27. VENTOLIN [Concomitant]
     Active Substance: ALBUTEROL SULFATE
     Dosage: 90 UG, UNK
     Route: 064
     Dates: start: 20100927
  28. PRENAPLUS [Concomitant]
     Dosage: UNK
     Route: 064
     Dates: start: 20101117

REACTIONS (3)
  - Maternal exposure during pregnancy [Unknown]
  - Cleft palate [Unknown]
  - Otitis media chronic [Unknown]

NARRATIVE: CASE EVENT DATE: 20110703
